FAERS Safety Report 20503122 (Version 1)
Quarter: 2022Q1

REPORT INFORMATION
  Report Type: Spontaneous
  Country: TR (occurrence: TR)
  Receive Date: 20220222
  Receipt Date: 20220222
  Transmission Date: 20220423
  Serious: Yes (Other)
  Sender: FDA-Public Use
  Company Number: TR-NOVARTISPH-NVSC2022TR038922

PATIENT
  Age: 57 Year
  Sex: Female

DRUGS (2)
  1. SECUKINUMAB [Suspect]
     Active Substance: SECUKINUMAB
     Indication: Rheumatoid arthritis
     Dosage: UNK, QW
     Route: 065
     Dates: start: 2021
  2. SECUKINUMAB [Suspect]
     Active Substance: SECUKINUMAB
     Dosage: UNK (USING IT AGAIN FOR 2 MONTHS)
     Route: 065

REACTIONS (6)
  - Rheumatoid arthritis [Unknown]
  - Product supply issue [Unknown]
  - Influenza [Unknown]
  - Illness [Unknown]
  - Inappropriate schedule of product administration [Unknown]
  - Off label use [Unknown]
